FAERS Safety Report 17566397 (Version 3)
Quarter: 2020Q3

REPORT INFORMATION
  Report Type: Spontaneous
  Country: US (occurrence: US)
  Receive Date: 20200320
  Receipt Date: 20200702
  Transmission Date: 20201102
  Serious: Yes (Other)
  Sender: FDA-Public Use
  Company Number: NVSC2020US077759

PATIENT
  Age: 80 Year
  Sex: Male

DRUGS (5)
  1. EYLEA [Suspect]
     Active Substance: AFLIBERCEPT
     Dosage: UNK (RIGHT EYE)
     Route: 065
     Dates: start: 20190923
  2. EYLEA [Suspect]
     Active Substance: AFLIBERCEPT
     Indication: NEOVASCULAR AGE-RELATED MACULAR DEGENERATION
     Dosage: UNK (RIGHT EYE)
     Route: 065
     Dates: start: 20190626
  3. BEOVU [Suspect]
     Active Substance: BROLUCIZUMAB-DBLL
     Indication: NEOVASCULAR AGE-RELATED MACULAR DEGENERATION
     Dosage: 0.05 ML, QMO
     Route: 047
     Dates: start: 202002
  4. BEOVU [Suspect]
     Active Substance: BROLUCIZUMAB-DBLL
     Dosage: 6 MG, Q4W
     Route: 031
     Dates: start: 20200311, end: 20200311
  5. EYLEA [Suspect]
     Active Substance: AFLIBERCEPT
     Dosage: UNK (RIGHT EYE)
     Route: 065
     Dates: start: 20191231

REACTIONS (3)
  - Vitritis [Recovering/Resolving]
  - Non-infectious endophthalmitis [Recovered/Resolved]
  - Blindness transient [Recovering/Resolving]

NARRATIVE: CASE EVENT DATE: 202003
